FAERS Safety Report 9398244 (Version 1)
Quarter: 2013Q3

REPORT INFORMATION
  Report Type: Spontaneous
  Country: US (occurrence: US)
  Receive Date: 20130712
  Receipt Date: 20130712
  Transmission Date: 20140515
  Serious: No
  Sender: FDA-Public Use
  Company Number: US-GLAXOSMITHKLINE-A0998197A

PATIENT
  Age: 57 Year
  Sex: Male

DRUGS (19)
  1. FLOVENT [Suspect]
     Indication: DYSPNOEA
     Dosage: 2PUFF TWICE PER DAY
     Route: 055
     Dates: start: 1997
  2. DEODORANT [Concomitant]
  3. ASACOL [Concomitant]
  4. ASPIRIN [Concomitant]
  5. ATIVAN [Concomitant]
  6. FIORICET [Concomitant]
  7. FLONASE [Concomitant]
  8. MAXAIR [Concomitant]
  9. NITROGLYCERIN [Concomitant]
  10. AMLODIPINE [Concomitant]
  11. OXYCONTIN [Concomitant]
  12. PREVACID [Concomitant]
  13. RESTASIS [Concomitant]
  14. RETIN A [Concomitant]
  15. SOMA [Concomitant]
  16. TOPROL XL [Concomitant]
  17. TRAZODONE [Concomitant]
  18. ZANTAC [Concomitant]
  19. ZETIA [Concomitant]

REACTIONS (4)
  - Dyspnoea [Unknown]
  - Upper respiratory tract infection [Unknown]
  - Dyspnoea exertional [Unknown]
  - Product quality issue [Unknown]
